FAERS Safety Report 5649740-7 (Version None)
Quarter: 2008Q1

REPORT INFORMATION
  Report Type: 
  Country: None (occurrence: None)
  Receive Date: 20080304
  Receipt Date: 20080221
  Transmission Date: 20080703
  Serious: Yes (Other)
  Sender: FDA-Public Use
  Company Number: US-PFIZER INC-2008016236

PATIENT

DRUGS (3)
  1. LYRICA [Suspect]
  2. LAMICTAL [Interacting]
  3. DRUG USED IN DIABETES [Concomitant]

REACTIONS (4)
  - DIZZINESS [None]
  - DRUG INTERACTION [None]
  - MANIA [None]
  - SOMNOLENCE [None]
